FAERS Safety Report 16803517 (Version 2)
Quarter: 2023Q1

REPORT INFORMATION
  Report Type: Spontaneous
  Country: CA (occurrence: CA)
  Receive Date: 20190913
  Receipt Date: 20230210
  Transmission Date: 20230418
  Serious: Yes (Hospitalization)
  Sender: FDA-Public Use
  Company Number: CA-002147023-PHHY2019CA205368

PATIENT
  Sex: Female

DRUGS (26)
  1. XOLAIR [Suspect]
     Active Substance: OMALIZUMAB
     Indication: Product used for unknown indication
     Dosage: 250 MG
     Route: 058
  2. XOLAIR [Suspect]
     Active Substance: OMALIZUMAB
     Dosage: 250 MG
     Route: 058
  3. XOLAIR [Suspect]
     Active Substance: OMALIZUMAB
     Dosage: 250 MG
     Route: 058
  4. XOLAIR [Suspect]
     Active Substance: OMALIZUMAB
     Dosage: 250 MG
     Route: 058
  5. XOLAIR [Suspect]
     Active Substance: OMALIZUMAB
     Dosage: UNK
     Route: 058
  6. XOLAIR [Suspect]
     Active Substance: OMALIZUMAB
     Dosage: UNK
     Route: 058
  7. XOLAIR [Suspect]
     Active Substance: OMALIZUMAB
     Dosage: UNK
     Route: 058
  8. XOLAIR [Suspect]
     Active Substance: OMALIZUMAB
     Dosage: UNK
     Route: 058
  9. XOLAIR [Suspect]
     Active Substance: OMALIZUMAB
     Dosage: UNK
     Route: 058
  10. XOLAIR [Suspect]
     Active Substance: OMALIZUMAB
     Dosage: 250 MG
     Route: 058
  11. XOLAIR [Suspect]
     Active Substance: OMALIZUMAB
     Dosage: 250 MG
     Route: 058
  12. XOLAIR [Suspect]
     Active Substance: OMALIZUMAB
     Dosage: 250 MG
     Route: 058
  13. XOLAIR [Suspect]
     Active Substance: OMALIZUMAB
     Dosage: 250 MG
     Route: 058
  14. XOLAIR [Suspect]
     Active Substance: OMALIZUMAB
     Dosage: 250 MG
     Route: 058
  15. XOLAIR [Suspect]
     Active Substance: OMALIZUMAB
     Dosage: UNK
     Route: 058
  16. XOLAIR [Suspect]
     Active Substance: OMALIZUMAB
     Dosage: 250 MG
     Route: 058
  17. XOLAIR [Suspect]
     Active Substance: OMALIZUMAB
     Dosage: 250 MG
     Route: 058
  18. XOLAIR [Suspect]
     Active Substance: OMALIZUMAB
     Dosage: 250 MG
     Route: 058
  19. XOLAIR [Suspect]
     Active Substance: OMALIZUMAB
     Dosage: 225 MG, BIW
     Route: 058
  20. XOLAIR [Suspect]
     Active Substance: OMALIZUMAB
     Dosage: 225 MG, UNK
     Route: 058
  21. XOLAIR [Suspect]
     Active Substance: OMALIZUMAB
     Dosage: UNK UNK, BIW
     Route: 058
  22. MORPHINE [Suspect]
     Active Substance: MORPHINE
     Indication: Product used for unknown indication
     Route: 065
  23. FLUMIST [Suspect]
     Active Substance: INFLUENZA A VIRUS A/CALIFORNIA/7/2009 (H1N1) LIVE(ATTENUATED) ANTIGEN\INFLUENZA A VIRUS A/PERTH/16/2
     Indication: Product used for unknown indication
     Dosage: UNK (SPRAY (NOT INHALATION))
     Route: 045
  24. SYMBICORT [Concomitant]
     Active Substance: BUDESONIDE\FORMOTEROL FUMARATE DIHYDRATE
     Indication: Product used for unknown indication
     Route: 065
  25. VENTOLIN [Concomitant]
     Active Substance: ALBUTEROL SULFATE
     Indication: Product used for unknown indication
     Route: 065
  26. PREDNISONE [Concomitant]
     Active Substance: PREDNISONE
     Indication: Asthma
     Route: 065

REACTIONS (31)
  - Anxiety [Not Recovered/Not Resolved]
  - Lower respiratory tract infection [Not Recovered/Not Resolved]
  - Stress [Not Recovered/Not Resolved]
  - Hunger [Not Recovered/Not Resolved]
  - Dyspnoea [Not Recovered/Not Resolved]
  - Blood pressure systolic increased [Not Recovered/Not Resolved]
  - Blood pressure decreased [Not Recovered/Not Resolved]
  - Pyrexia [Not Recovered/Not Resolved]
  - Forced expiratory volume decreased [Not Recovered/Not Resolved]
  - Hiatus hernia [Not Recovered/Not Resolved]
  - Ligament sprain [Not Recovered/Not Resolved]
  - Malaise [Not Recovered/Not Resolved]
  - Mobility decreased [Not Recovered/Not Resolved]
  - Nerve compression [Not Recovered/Not Resolved]
  - Osteoarthritis [Not Recovered/Not Resolved]
  - Pain in extremity [Not Recovered/Not Resolved]
  - Peripheral swelling [Not Recovered/Not Resolved]
  - Sensitivity to weather change [Not Recovered/Not Resolved]
  - Sleep disorder [Not Recovered/Not Resolved]
  - Sputum discoloured [Not Recovered/Not Resolved]
  - Weight decreased [Not Recovered/Not Resolved]
  - Cough [Not Recovered/Not Resolved]
  - Dizziness [Not Recovered/Not Resolved]
  - Fatigue [Not Recovered/Not Resolved]
  - Nausea [Not Recovered/Not Resolved]
  - Somnolence [Not Recovered/Not Resolved]
  - Asthma [Not Recovered/Not Resolved]
  - Injection site erythema [Not Recovered/Not Resolved]
  - Injection site pain [Not Recovered/Not Resolved]
  - Drug ineffective [Unknown]
  - Product dose omission issue [Unknown]
